FAERS Safety Report 9352768 (Version 1)
Quarter: 2013Q2

REPORT INFORMATION
  Report Type: Spontaneous
  Country: US (occurrence: None)
  Receive Date: 20130614
  Receipt Date: 20130614
  Transmission Date: 20140414
  Serious: Yes (Life-Threatening)
  Sender: FDA-Public Use
  Company Number: None

PATIENT
  Age: 46 Year
  Sex: Female

DRUGS (7)
  1. STELARA [Suspect]
     Dosage: UNDER THE SKIN
     Dates: start: 20100820
  2. CITALOPRAM [Concomitant]
  3. PRILOSEC [Concomitant]
  4. FAMCICLOVIR [Concomitant]
  5. SEPTRA [Concomitant]
  6. ONDANSETRON [Concomitant]
  7. PROMETHAZINE [Concomitant]

REACTIONS (1)
  - Breast cancer [None]
